FAERS Safety Report 12645619 (Version 2)
Quarter: 2016Q3

REPORT INFORMATION
  Report Type: Spontaneous
  Country: IT (occurrence: IT)
  Receive Date: 20160811
  Receipt Date: 20160822
  Transmission Date: 20161109
  Serious: Yes (Hospitalization, Other)
  Sender: FDA-Public Use
  Company Number: IT-009507513-1606ITA001840

PATIENT
  Age: 65 Year
  Sex: Female

DRUGS (12)
  1. TRADJENTA [Concomitant]
     Active Substance: LINAGLIPTIN
     Dosage: UNK
     Route: 048
     Dates: start: 201510
  2. ERREKAPPA EUROTERAPICI AMINOTROFIC [Concomitant]
     Dosage: 2 DOSE UNITS DAILY
  3. INEGY 10MG/40MG COMPRESSE [Suspect]
     Active Substance: EZETIMIBE\SIMVASTATIN
     Indication: HYPERTRIGLYCERIDAEMIA
     Dosage: 1 TABLET (10/40MG) DAILY
     Route: 048
     Dates: start: 20150709, end: 20160513
  4. COUMADIN [Concomitant]
     Active Substance: WARFARIN SODIUM
     Dosage: UNK
     Route: 048
     Dates: start: 201604
  5. MIRCERA [Concomitant]
     Active Substance: METHOXY POLYETHYLENE GLYCOL-EPOETIN BETA
  6. LANSOPRAZOL RATIOPHARM [Concomitant]
     Active Substance: LANSOPRAZOLE
     Dosage: UNK
     Route: 048
     Dates: start: 2013
  7. ADENURIC [Concomitant]
     Active Substance: FEBUXOSTAT
     Dosage: UNK
     Route: 048
     Dates: start: 201602
  8. CALCITRIOL. [Concomitant]
     Active Substance: CALCITRIOL
     Dosage: UNK
     Route: 048
     Dates: start: 2014
  9. ESAPENT [Concomitant]
     Dosage: UNKNOWN
  10. RENVELA [Concomitant]
     Active Substance: SEVELAMER CARBONATE
     Dosage: UNK
     Route: 048
     Dates: start: 201602
  11. CARDIRENE [Concomitant]
     Active Substance: ASPIRIN DL-LYSINE
     Dosage: UNK
     Route: 048
     Dates: start: 2013
  12. BISOPROLOL [Concomitant]
     Active Substance: BISOPROLOL
     Dosage: UNK
     Route: 048
     Dates: start: 201601

REACTIONS (6)
  - Cardiac disorder [Unknown]
  - Drug dose omission [Unknown]
  - Overdose [Unknown]
  - Rhabdomyolysis [Recovered/Resolved]
  - Blood cholesterol increased [Recovered/Resolved]
  - Blood triglycerides increased [Recovered/Resolved]

NARRATIVE: CASE EVENT DATE: 20160513
